FAERS Safety Report 9426614 (Version 4)
Quarter: 2013Q3

REPORT INFORMATION
  Report Type: Spontaneous
  Country: US (occurrence: US)
  Receive Date: 20130730
  Receipt Date: 20130923
  Transmission Date: 20140515
  Serious: Yes (Hospitalization, Other)
  Sender: FDA-Public Use
  Company Number: US-PFIZER INC-2013218769

PATIENT
  Age: 75 Year
  Sex: Male
  Weight: 90.7 kg

DRUGS (18)
  1. SUTENT [Suspect]
     Indication: RENAL CELL CARCINOMA
     Dosage: 50 MG, 1X/DAY (DAILY)
     Route: 048
     Dates: start: 20130715, end: 20130801
  2. SUTENT [Suspect]
     Dosage: 37.5 MG, UNK
     Route: 048
     Dates: start: 20130819, end: 20130906
  3. FOLIC ACID [Concomitant]
     Dosage: UNK
  4. ZEGERID [Concomitant]
     Dosage: UNK
  5. GLIMEPIRIDE [Concomitant]
     Dosage: UNK
  6. CRESTOR [Concomitant]
     Dosage: UNK
  7. ASPIRIN [Concomitant]
     Dosage: 81 MG, UNK
  8. METOPROLOL [Concomitant]
     Dosage: UNK
  9. ISOSORBIDE [Concomitant]
     Dosage: UNK
  10. ALLOPURINOL [Concomitant]
     Dosage: UNK
  11. CETIRIZINE [Concomitant]
     Dosage: UNK
  12. VITAMIN E [Concomitant]
     Dosage: UNK
  13. FISH OIL [Concomitant]
     Dosage: UNK
  14. VITAMIN B12 [Concomitant]
     Dosage: UNK
  15. TIROSINT [Concomitant]
     Dosage: UNK
  16. HYCODAN [Concomitant]
     Indication: COUGH
     Dosage: UNK
  17. RAMIPRIL [Concomitant]
     Dosage: UNK
  18. TYLENOL [Concomitant]
     Indication: HEADACHE
     Dosage: UNK

REACTIONS (29)
  - Oral pain [Not Recovered/Not Resolved]
  - Glossodynia [Not Recovered/Not Resolved]
  - Ageusia [Not Recovered/Not Resolved]
  - Weight decreased [Not Recovered/Not Resolved]
  - Oxygen saturation decreased [Recovered/Resolved]
  - Hypertension [Recovered/Resolved]
  - Heart rate increased [Recovered/Resolved]
  - Loss of consciousness [Recovered/Resolved]
  - Nausea [Not Recovered/Not Resolved]
  - Anxiety [Recovered/Resolved]
  - Vomiting [Recovered/Resolved]
  - Cardiac arrest [Recovered/Resolved]
  - Pruritus [Unknown]
  - Oral pain [Unknown]
  - Abdominal discomfort [Unknown]
  - Flatulence [Unknown]
  - Abdominal discomfort [Unknown]
  - Chromaturia [Unknown]
  - Yellow skin [Unknown]
  - Blood glucose increased [Unknown]
  - Malaise [Unknown]
  - Diarrhoea [Not Recovered/Not Resolved]
  - Dysgeusia [Not Recovered/Not Resolved]
  - Decreased appetite [Unknown]
  - Dyspnoea [Unknown]
  - Fall [Unknown]
  - Head injury [Unknown]
  - Therapeutic response unexpected [Unknown]
  - Pre-existing condition improved [Recovered/Resolved]
